FAERS Safety Report 6775196-7 (Version None)
Quarter: 2010Q2

REPORT INFORMATION
  Report Type: 
  Country: None (occurrence: None)
  Receive Date: 20100617
  Receipt Date: 20100614
  Transmission Date: 20101027
  Serious: Yes (Life-Threatening, Hospitalization)
  Sender: FDA-Public Use
  Company Number: JP-SANOFI-AVENTIS-2010SA034068

PATIENT
  Age: 67 Year
  Sex: Female
  Weight: 36.5 kg

DRUGS (11)
  1. OXALIPLATIN [Suspect]
     Indication: COLON CANCER METASTATIC
     Route: 041
     Dates: start: 20100203, end: 20100203
  2. OXALIPLATIN [Suspect]
     Route: 041
  3. CALCIUM LEVOFOLINATE [Suspect]
     Indication: COLON CANCER METASTATIC
     Route: 041
     Dates: start: 20100203, end: 20100203
  4. CALCIUM LEVOFOLINATE [Suspect]
     Route: 041
  5. FLUOROURACIL [Suspect]
     Indication: COLON CANCER METASTATIC
     Route: 041
     Dates: start: 20100203, end: 20100203
  6. FLUOROURACIL [Suspect]
     Route: 041
  7. AVASTIN [Suspect]
     Indication: COLON CANCER METASTATIC
     Route: 041
     Dates: start: 20100203, end: 20100203
  8. AVASTIN [Suspect]
     Route: 041
  9. LOXOPROFEN [Suspect]
     Indication: CANCER PAIN
     Route: 065
     Dates: start: 20100127, end: 20100407
  10. DEXAMETHASONE [Suspect]
     Indication: CANCER PAIN
     Route: 065
     Dates: start: 20100218, end: 20100220
  11. FAMOTIDINE [Concomitant]
     Dates: start: 20100127, end: 20100305

REACTIONS (2)
  - DUODENAL PERFORATION [None]
  - GASTROINTESTINAL PERFORATION [None]
